FAERS Safety Report 12802542 (Version 1)
Quarter: 2016Q4

REPORT INFORMATION
  Report Type: Report from Study
  Country: US (occurrence: US)
  Receive Date: 20161003
  Receipt Date: 20161003
  Transmission Date: 20170207
  Serious: Yes (Other)
  Sender: FDA-Public Use
  Company Number: US-AMGEN-USASL2016133704

PATIENT

DRUGS (1)
  1. KYPROLIS [Suspect]
     Active Substance: CARFILZOMIB
     Indication: PRODUCT USED FOR UNKNOWN INDICATION
     Dosage: UNK
     Route: 065

REACTIONS (35)
  - Respiratory disorder [Unknown]
  - Upper respiratory tract infection [Unknown]
  - Pyrexia [Unknown]
  - Urinary tract infection [Unknown]
  - Subdural haemorrhage [Unknown]
  - Generalised anxiety disorder [Unknown]
  - Chondropathy [Unknown]
  - Bone disorder [Unknown]
  - Insomnia [Unknown]
  - Agranulocytosis [Unknown]
  - Bundle branch block left [Unknown]
  - Back pain [Unknown]
  - Asthenia [Unknown]
  - Bradycardia [Unknown]
  - Neutropenia [Unknown]
  - Adverse drug reaction [Unknown]
  - Bronchitis [Unknown]
  - Pain in extremity [Unknown]
  - Musculoskeletal pain [Unknown]
  - Dyspnoea [Unknown]
  - Type IIa hyperlipidaemia [Unknown]
  - Thrombocytopenia [Unknown]
  - Pollakiuria [Unknown]
  - Anaemia [Unknown]
  - Essential hypertension [Unknown]
  - Senile osteoporosis [Unknown]
  - Fall [Unknown]
  - Myelodysplastic syndrome [Unknown]
  - Hypokalaemia [Unknown]
  - Arteriosclerosis coronary artery [Unknown]
  - Pain [Unknown]
  - Acute kidney injury [Unknown]
  - Cardiovascular disorder [Unknown]
  - Immune system disorder [Unknown]
  - Dysuria [Unknown]

NARRATIVE: CASE EVENT DATE: 20141029
